FAERS Safety Report 8996051 (Version 1)
Quarter: 2013Q1

REPORT INFORMATION
  Report Type: Spontaneous
  Country: US (occurrence: US)
  Receive Date: 20130103
  Receipt Date: 20130103
  Transmission Date: 20140127
  Serious: No
  Sender: FDA-Public Use
  Company Number: US-ABBOTT-12P-163-0933964-00

PATIENT
  Sex: Male

DRUGS (3)
  1. SYNTHROID [Suspect]
     Indication: WEIGHT DECREASED
     Dosage: TAKES AFTER BREAKFAST
     Dates: start: 2012
  2. SYNTHROID [Suspect]
     Indication: HYPOTHYROIDISM
  3. MULTIVITAMINS [Concomitant]
     Indication: VITAMIN SUPPLEMENTATION

REACTIONS (3)
  - Weight loss poor [Unknown]
  - Off label use [Unknown]
  - Drug ineffective for unapproved indication [Unknown]
